FAERS Safety Report 14322625 (Version 1)
Quarter: 2017Q4

REPORT INFORMATION
  Report Type: Spontaneous
  Country: FR (occurrence: FR)
  Receive Date: 20171225
  Receipt Date: 20171225
  Transmission Date: 20180321
  Serious: Yes (Death, Congenital Anomaly)
  Sender: FDA-Public Use
  Company Number: FR-ASTRAZENECA-2017SF29820

PATIENT

DRUGS (1)
  1. ZOMIG [Suspect]
     Active Substance: ZOLMITRIPTAN
     Indication: MIGRAINE
     Route: 064
     Dates: start: 20160920, end: 20170117

REACTIONS (1)
  - Foetal growth restriction [Fatal]

NARRATIVE: CASE EVENT DATE: 2016
